FAERS Safety Report 6204259-X (Version None)
Quarter: 2009Q2

REPORT INFORMATION
  Report Type: 
  Country: None (occurrence: None)
  Receive Date: 20090526
  Receipt Date: 20090511
  Transmission Date: 20091009
  Serious: Yes (Other)
  Sender: FDA-Public Use
  Company Number: VAL_00263_2009

PATIENT
  Sex: Female
  Weight: 61.2356 kg

DRUGS (5)
  1. EQUETRO [Suspect]
     Indication: BIPOLAR DISORDER
     Dosage: (200 MG BID, EXTENDED RELEASE CAPSULE ORAL)
     Route: 048
     Dates: start: 20090201
  2. LANOXIN [Concomitant]
  3. TOPAMAX [Concomitant]
  4. SYNTHROID [Concomitant]
  5. TRICOR [Concomitant]

REACTIONS (4)
  - BIPOLAR DISORDER [None]
  - CONDITION AGGRAVATED [None]
  - HALLUCINATION, VISUAL [None]
  - PRODUCT SUBSTITUTION ISSUE [None]
